FAERS Safety Report 10707309 (Version 1)
Quarter: 2015Q1

REPORT INFORMATION
  Report Type: Spontaneous
  Country: US (occurrence: None)
  Receive Date: 20150112
  Receipt Date: 20150112
  Transmission Date: 20150721
  Serious: No
  Sender: FDA-Public Use
  Company Number: None

PATIENT
  Age: 56 Year
  Sex: Female

DRUGS (12)
  1. LANTUS [Concomitant]
     Active Substance: INSULIN GLARGINE
  2. CELEBREX [Concomitant]
     Active Substance: CELECOXIB
  3. FLUCONAZOLE. [Concomitant]
     Active Substance: FLUCONAZOLE
  4. BRINTELLIX [Suspect]
     Active Substance: VORTIOXETINE HYDROBROMIDE
     Dosage: 2 TABLETS
     Route: 048
     Dates: start: 20141029, end: 20141222
  5. TELMISARTAN. [Concomitant]
     Active Substance: TELMISARTAN
  6. HUMALOG [Concomitant]
     Active Substance: INSULIN LISPRO
  7. ROZEREM [Concomitant]
     Active Substance: RAMELTEON
  8. CEREFOLIN NAC [Concomitant]
  9. CARVEDILOL. [Concomitant]
     Active Substance: CARVEDILOL
  10. LATANOPROST. [Concomitant]
     Active Substance: LATANOPROST
  11. RISPERIDONE. [Concomitant]
     Active Substance: RISPERIDONE
  12. CLONAZEPAM. [Concomitant]
     Active Substance: CLONAZEPAM

REACTIONS (1)
  - Adverse drug reaction [None]
